FAERS Safety Report 8261471-6 (Version None)
Quarter: 2012Q2

REPORT INFORMATION
  Report Type: 
  Country: None (occurrence: None)
  Receive Date: 20120405
  Receipt Date: 20120328
  Transmission Date: 20120825
  Serious: Yes (Hospitalization)
  Sender: FDA-Public Use
  Company Number: US-BAYER-2011-102962

PATIENT
  Age: 19 Year
  Sex: Female
  Weight: 81.633 kg

DRUGS (8)
  1. YAZ [Suspect]
     Indication: CONTRACEPTION
     Dosage: UNK UNK, QD
     Route: 048
     Dates: start: 20060924, end: 20061107
  2. KEFLEX [Concomitant]
     Indication: INJECTION SITE CELLULITIS
     Dosage: 500 MG, QID
     Route: 048
     Dates: start: 20061025
  3. PHENERGAN HCL [Concomitant]
     Indication: NAUSEA
     Dosage: 10 MG, PRN
     Route: 048
     Dates: start: 20061025
  4. PHENERGAN HCL [Concomitant]
     Indication: VOMITING
  5. AZITHROMYCIN [Concomitant]
     Indication: BRONCHITIS
     Dosage: UNK
     Route: 048
     Dates: start: 20061027
  6. YAZ [Suspect]
     Indication: MENSTRUATION IRREGULAR
  7. NITROFURANTOIN [Concomitant]
     Dosage: UNK
     Route: 048
     Dates: start: 20060815
  8. YAZ [Suspect]
     Indication: PREMENSTRUAL SYNDROME

REACTIONS (4)
  - DYSPNOEA [None]
  - PAIN [None]
  - PULMONARY EMBOLISM [None]
  - ANXIETY [None]
